FAERS Safety Report 19478788 (Version 2)
Quarter: 2021Q4

REPORT INFORMATION
  Report Type: Report from Study
  Country: US (occurrence: US)
  Receive Date: 20210630
  Receipt Date: 20211004
  Transmission Date: 20220303
  Serious: No
  Sender: FDA-Public Use
  Company Number: NVSC2021US141015

PATIENT
  Age: 64 Year
  Sex: Female
  Weight: 81.65 kg

DRUGS (1)
  1. FEMARA [Suspect]
     Active Substance: LETROZOLE
     Indication: Cancer hormonal therapy
     Dosage: 25 MG, (ONCE DAILY)
     Route: 048
     Dates: start: 202101, end: 20210516

REACTIONS (3)
  - Pain in extremity [Recovered/Resolved]
  - Bone pain [Recovered/Resolved]
  - Arthralgia [Recovered/Resolved]

NARRATIVE: CASE EVENT DATE: 20210101
